FAERS Safety Report 8396260-5 (Version None)
Quarter: 2012Q2

REPORT INFORMATION
  Report Type: 
  Country: None (occurrence: None)
  Receive Date: 20120530
  Receipt Date: 20120523
  Transmission Date: 20120825
  Serious: Yes (Life-Threatening, Other)
  Sender: FDA-Public Use
  Company Number: JP-BRISTOL-MYERS SQUIBB COMPANY-15746118

PATIENT
  Age: 67 Year
  Sex: Female

DRUGS (3)
  1. DIPRIVAN [Suspect]
     Dates: start: 20110509
  2. VECURONIUM BROMIDE [Suspect]
     Route: 042
     Dates: start: 20110509
  3. MAXIPIME [Suspect]
     Indication: INFECTION PROPHYLAXIS
     Route: 041
     Dates: start: 20110509

REACTIONS (2)
  - HYPOTENSION [None]
  - ANAPHYLACTIC SHOCK [None]
